FAERS Safety Report 14686188 (Version 2)
Quarter: 2019Q2

REPORT INFORMATION
  Report Type: Spontaneous
  Country: GR (occurrence: GR)
  Receive Date: 20180327
  Receipt Date: 20190425
  Transmission Date: 20190711
  Serious: Yes (Life-Threatening)
  Sender: FDA-Public Use
  Company Number: GR-BRISTOL-MYERS SQUIBB COMPANY-BMS-2018-024174

PATIENT
  Age: 67 Year
  Sex: Female
  Weight: 82 kg

DRUGS (4)
  1. PRAVACHOL [Suspect]
     Active Substance: PRAVASTATIN SODIUM
     Indication: DYSLIPIDAEMIA
     Dosage: 40 MG, QD
     Route: 048
     Dates: start: 201402, end: 201503
  2. PITAVA [Suspect]
     Active Substance: PITAVASTATIN
     Indication: PRODUCT USED FOR UNKNOWN INDICATION
     Dosage: 1 DOSAGE FORM, QD
     Route: 048
     Dates: start: 201705
  3. PRAVACHOL [Suspect]
     Active Substance: PRAVASTATIN SODIUM
     Indication: PRODUCT USED FOR UNKNOWN INDICATION
     Dosage: 1 DOSAGE FORM, QD
     Route: 048
     Dates: start: 201710
  4. PITAVA [Suspect]
     Active Substance: PITAVASTATIN
     Indication: DYSLIPIDAEMIA
     Dosage: 2 MG, QD
     Route: 048
     Dates: start: 201503, end: 201608

REACTIONS (2)
  - Myalgia [Recovered/Resolved]
  - Myopathy [Recovered/Resolved]

NARRATIVE: CASE EVENT DATE: 2016
